FAERS Safety Report 6602037-0 (Version None)
Quarter: 2010Q1

REPORT INFORMATION
  Report Type: 
  Country: None (occurrence: None)
  Receive Date: 20100225
  Receipt Date: 20100218
  Transmission Date: 20100710
  Serious: Yes (Hospitalization)
  Sender: FDA-Public Use
  Company Number: DE-ASTRAZENECA-2010SE07474

PATIENT
  Age: 56 Year
  Sex: Male

DRUGS (17)
  1. SEROQUEL XR [Suspect]
     Route: 048
     Dates: start: 20090925, end: 20090928
  2. SEROQUEL XR [Suspect]
     Route: 048
     Dates: start: 20090929, end: 20091005
  3. SEROQUEL XR [Suspect]
     Route: 048
     Dates: start: 20091006, end: 20091013
  4. SEROQUEL XR [Suspect]
     Route: 048
     Dates: start: 20091014, end: 20091022
  5. SEROQUEL XR [Suspect]
     Route: 048
     Dates: start: 20091023, end: 20091023
  6. SEROQUEL XR [Suspect]
     Route: 048
     Dates: start: 20091024, end: 20091027
  7. SEROQUEL XR [Suspect]
     Route: 048
     Dates: start: 20091028, end: 20091104
  8. SEROQUEL XR [Suspect]
     Route: 048
     Dates: start: 20091105
  9. TAXILAN [Suspect]
     Route: 048
     Dates: start: 20091023
  10. ERGENYL [Suspect]
     Route: 048
     Dates: start: 20091027, end: 20091028
  11. ERGENYL [Suspect]
     Route: 048
     Dates: start: 20091029, end: 20091029
  12. ERGENYL [Suspect]
     Route: 048
     Dates: start: 20091118
  13. ASPIRIN [Concomitant]
     Route: 048
  14. PLAVIX [Concomitant]
     Route: 048
  15. CODIOVAN [Concomitant]
     Dosage: 160/12.5 MG
     Route: 048
  16. DELIX [Concomitant]
     Route: 048
  17. PANTOZOL [Concomitant]
     Route: 048

REACTIONS (4)
  - DEPRESSED LEVEL OF CONSCIOUSNESS [None]
  - DYSARTHRIA [None]
  - MENTAL DISORDER [None]
  - RESTLESSNESS [None]
